FAERS Safety Report 24014267 (Version 4)
Quarter: 2025Q4

REPORT INFORMATION
  Report Type: Report from Study
  Country: EU (occurrence: EU)
  Receive Date: 20240626
  Receipt Date: 20251007
  Transmission Date: 20260118
  Serious: No
  Sender: SANDOZ
  Company Number: EU-SANDOZ-SDZ2024IT060670

PATIENT
  Age: 35 Year
  Sex: Female
  Weight: 60 kg

DRUGS (2)
  1. OMNITROPE [Suspect]
     Active Substance: SOMATROPIN
     Indication: Growth hormone deficiency
     Dosage: 0.5 MG, QD
     Route: 058
     Dates: start: 20230323
  2. OMNITROPE [Suspect]
     Active Substance: SOMATROPIN
     Dosage: 0.5 MG, QD
     Route: 058
     Dates: start: 20250422

REACTIONS (5)
  - Drug dose omission by device [Unknown]
  - Device mechanical issue [Unknown]
  - Device issue [Unknown]
  - Drug dose omission by device [Unknown]
  - Device occlusion [Unknown]

NARRATIVE: CASE EVENT DATE: 20240419
